FAERS Safety Report 16227587 (Version 3)
Quarter: 2019Q2

REPORT INFORMATION
  Report Type: Spontaneous
  Country: ES (occurrence: ES)
  Receive Date: 20190423
  Receipt Date: 20190430
  Transmission Date: 20190711
  Serious: Yes (Life-Threatening, Other)
  Sender: FDA-Public Use
  Company Number: ES-PFIZER INC-2019173027

PATIENT
  Age: 39 Year
  Sex: Male

DRUGS (5)
  1. AZITHROMYCIN ANHYDROUS. [Concomitant]
     Active Substance: AZITHROMYCIN ANHYDROUS
     Dosage: UNK
  2. ETANERCEPT [Concomitant]
     Active Substance: ETANERCEPT
     Indication: PSORIATIC ARTHROPATHY
     Dosage: UNK
     Route: 065
  3. NAPROXEN. [Concomitant]
     Active Substance: NAPROXEN
     Indication: PSORIATIC ARTHROPATHY
     Dosage: UNK
  4. NEOTIGASON [Concomitant]
     Active Substance: ACITRETIN
     Indication: PSORIATIC ARTHROPATHY
     Dosage: UNK
     Route: 065
  5. PANTOPRAZOLE [Suspect]
     Active Substance: PANTOPRAZOLE
     Indication: PSORIATIC ARTHROPATHY
     Dosage: UNK

REACTIONS (2)
  - Product use in unapproved indication [Unknown]
  - Stevens-Johnson syndrome [Unknown]
